FAERS Safety Report 23455987 (Version 5)
Quarter: 2025Q2

REPORT INFORMATION
  Report Type: Spontaneous
  Country: FR (occurrence: FR)
  Receive Date: 20240130
  Receipt Date: 20250425
  Transmission Date: 20250716
  Serious: Yes (Hospitalization)
  Sender: SANDOZ
  Company Number: None

PATIENT
  Age: 74 Year
  Sex: Male
  Weight: 80.5 kg

DRUGS (16)
  1. AMOXICILLIN [Suspect]
     Active Substance: AMOXICILLIN
     Indication: Enterococcal infection
     Dosage: 12 G, QD
     Route: 041
     Dates: start: 20231218, end: 20231223
  2. AMOXICILLIN SODIUM [Suspect]
     Active Substance: AMOXICILLIN SODIUM
     Indication: Enterococcal infection
     Dosage: 12 G, QD
     Route: 041
     Dates: start: 20231218, end: 20231223
  3. CEFTRIAXONE [Suspect]
     Active Substance: CEFTRIAXONE
     Indication: Enterococcal infection
     Dosage: 4 G, QD (4 G, QD (2G/12H)
     Route: 041
     Dates: start: 20231222, end: 20231223
  4. CEFTRIAXONE [Suspect]
     Active Substance: CEFTRIAXONE
     Indication: Enterococcal infection
     Dosage: 4 G, QD
     Route: 041
     Dates: start: 20231222, end: 20231223
  5. GENTAMICIN [Suspect]
     Active Substance: GENTAMICIN
     Indication: Enterococcal infection
     Route: 041
     Dates: start: 20231218, end: 20231222
  6. GENTAMICIN [Suspect]
     Active Substance: GENTAMICIN
     Indication: Enterococcal infection
     Route: 041
     Dates: start: 20231218, end: 20231222
  7. LANSOPRAZOLE [Suspect]
     Active Substance: LANSOPRAZOLE
     Indication: Product used for unknown indication
     Dosage: 15 MG, QD
     Route: 048
     Dates: start: 20231218, end: 20231223
  8. ONDANSETRON HYDROCHLORIDE [Suspect]
     Active Substance: ONDANSETRON HYDROCHLORIDE
     Indication: Large intestinal obstruction
     Route: 048
     Dates: start: 20231208, end: 20231227
  9. ACETAMINOPHEN [Suspect]
     Active Substance: ACETAMINOPHEN
     Indication: Pain
     Route: 048
     Dates: start: 20231215
  10. ONDANSETRON [Suspect]
     Active Substance: ONDANSETRON
     Indication: Large intestinal obstruction
     Route: 048
     Dates: start: 20231208, end: 20231227
  11. POTASSIUM CHLORIDE [Concomitant]
     Active Substance: POTASSIUM CHLORIDE
     Indication: Large intestinal obstruction
     Route: 048
     Dates: start: 20231208, end: 20231217
  12. FUROSEMIDE [Concomitant]
     Active Substance: FUROSEMIDE
     Indication: Pulmonary embolism
     Dosage: 40 MG ,QD
     Route: 065
     Dates: start: 20231208, end: 20231218
  13. LOVENOX [Concomitant]
     Active Substance: ENOXAPARIN SODIUM
     Indication: Pulmonary embolism
     Dosage: 0.8 ML, BID
     Route: 058
     Dates: start: 20231222
  14. POLYETHYLENE GLYCOLS [Concomitant]
     Active Substance: POLYETHYLENE GLYCOLS
     Indication: Large intestinal obstruction
     Route: 048
     Dates: start: 20231208, end: 20231222
  15. Macrogol 4000 arrow [Concomitant]
     Indication: Large intestinal obstruction
     Route: 048
     Dates: start: 20231208, end: 20231222
  16. Spasfon [Concomitant]
     Indication: Large intestinal obstruction
     Route: 048
     Dates: start: 20231208, end: 20231217

REACTIONS (2)
  - Rash maculo-papular [Not Recovered/Not Resolved]
  - Epidermolysis [Not Recovered/Not Resolved]

NARRATIVE: CASE EVENT DATE: 20231223
